FAERS Safety Report 14720960 (Version 1)
Quarter: 2018Q2

REPORT INFORMATION
  Report Type: Spontaneous
  Country: DE (occurrence: DE)
  Receive Date: 20180405
  Receipt Date: 20180405
  Transmission Date: 20180711
  Serious: Yes (Life-Threatening, Hospitalization, Other)
  Sender: FDA-Public Use
  Company Number: DE-WEST-WARD PHARMACEUTICALS CORP.-DE-H14001-18-02552

PATIENT
  Age: 73 Year
  Sex: Male
  Weight: 68 kg

DRUGS (24)
  1. ALIMTA [Suspect]
     Active Substance: PEMETREXED DISODIUM
     Indication: PRODUCT USED FOR UNKNOWN INDICATION
     Dosage: DAILY DOSE: 652.5 MG MILLGRAM(S) EVERY 3 WEEKS
     Route: 042
     Dates: start: 20150129, end: 20150129
  2. FOLINIC ACID [Concomitant]
     Active Substance: LEUCOVORIN
     Indication: PRODUCT USED FOR UNKNOWN INDICATION
     Route: 065
  3. RAMIPRIL. [Concomitant]
     Active Substance: RAMIPRIL
     Indication: HYPERTENSION
     Dosage: DAILY DOSE: 10 MG MILLGRAM(S) EVERY DAYS
     Route: 048
  4. CARBOPLATIN. [Suspect]
     Active Substance: CARBOPLATIN
     Dosage: DAILY DOSE: 405.18 MG MILLGRAM(S) EVERY 3 WEEKS
     Route: 042
     Dates: start: 20150108, end: 20150108
  5. AVASTIN [Suspect]
     Active Substance: BEVACIZUMAB
     Dosage: DAILY DOSE: 15 MG/KG MILLIGRAM(S)/KILOGRAM EVERY 3 WEEKS
     Route: 042
     Dates: start: 20150129, end: 20150129
  6. ALIMTA [Suspect]
     Active Substance: PEMETREXED DISODIUM
     Indication: BRONCHIAL CARCINOMA
     Dosage: DAILY DOSE: 662.5 MG MILLGRAM(S) EVERY 3 WEEKS
     Route: 042
     Dates: start: 20150108, end: 20150108
  7. ALIMTA [Suspect]
     Active Substance: PEMETREXED DISODIUM
     Dosage: DAILY DOSE: 875 MG MILLGRAM(S) EVERY 3 WEEKS
     Route: 042
     Dates: start: 20141118
  8. AMLODIPIN [Concomitant]
     Active Substance: AMLODIPINE BESYLATE
     Indication: HYPERTENSION
     Route: 048
  9. DOLO POSTERINE [Concomitant]
     Indication: PRODUCT USED FOR UNKNOWN INDICATION
     Dosage: ()
     Route: 054
  10. CHLORHEXIDIN [Concomitant]
     Active Substance: CHLORHEXIDINE
     Indication: PROPHYLAXIS
     Dosage: (5)
     Route: 048
     Dates: start: 20150210
  11. TRYASOL [Concomitant]
     Indication: PRODUCT USED FOR UNKNOWN INDICATION
     Dosage: ()
  12. BISOPROLOL [Concomitant]
     Active Substance: BISOPROLOL
     Indication: PRODUCT USED FOR UNKNOWN INDICATION
     Route: 048
  13. AVASTIN [Suspect]
     Active Substance: BEVACIZUMAB
     Indication: PRODUCT USED FOR UNKNOWN INDICATION
     Dosage: DAILY DOSE: 15 MG/KG MILLIGRAM(S)/KILOGRAM EVERY 3 WEEKS
     Route: 042
     Dates: start: 20150108, end: 20150108
  14. ASPIRIN. [Concomitant]
     Active Substance: ASPIRIN
     Indication: PAIN
     Route: 048
  15. SIMVASTATIN. [Concomitant]
     Active Substance: SIMVASTATIN
     Indication: PRODUCT USED FOR UNKNOWN INDICATION
     Dosage: ()
  16. NOVAMINSULFON [Concomitant]
     Active Substance: METAMIZOLE
     Indication: PRODUCT USED FOR UNKNOWN INDICATION
     Dosage: ()
  17. CIPROFLOXACIN. [Concomitant]
     Active Substance: CIPROFLOXACIN
     Indication: PROPHYLAXIS
     Dosage: DAILY DOSE: 1000 MG MILLGRAM(S) EVERY DAYS
     Route: 048
     Dates: start: 20150210
  18. CARBOPLATIN. [Suspect]
     Active Substance: CARBOPLATIN
     Indication: BRONCHIAL CARCINOMA
     Dosage: DAILY DOSE: 512 MG MILLGRAM(S) EVERY 3 WEEKS
     Route: 042
     Dates: start: 20141118
  19. CARBOPLATIN. [Suspect]
     Active Substance: CARBOPLATIN
     Indication: PRODUCT USED FOR UNKNOWN INDICATION
     Dosage: DAILY DOSE: 358.24 MG MILLGRAM(S) EVERY 3 WEEKS
     Route: 042
     Dates: start: 20150129, end: 20150129
  20. AVASTIN [Suspect]
     Active Substance: BEVACIZUMAB
     Indication: BRONCHIAL CARCINOMA
     Dosage: DAILY DOSE: 15 MG/KG MILLIGRAM(S)/KILOGRAM EVERY 3 WEEKS
     Route: 042
     Dates: start: 20141118
  21. AMPHO-MORONAL [Concomitant]
     Active Substance: AMPHOTERICIN B
     Indication: PROPHYLAXIS
     Dosage: (5)
     Route: 048
     Dates: start: 20150210
  22. PANTOPRAZOL [Concomitant]
     Active Substance: PANTOPRAZOLE SODIUM
     Indication: DYSPEPSIA
     Route: 048
  23. DEKRISTOL [Concomitant]
     Active Substance: CHOLECALCIFEROL
     Indication: PRODUCT USED FOR UNKNOWN INDICATION
     Dosage: ()
  24. ZOPICLON [Concomitant]
     Active Substance: ZOPICLONE
     Indication: PRODUCT USED FOR UNKNOWN INDICATION
     Dosage: ()

REACTIONS (9)
  - Poor quality sleep [Not Recovered/Not Resolved]
  - Asthenia [Recovered/Resolved]
  - Insomnia [Unknown]
  - Leukopenia [Recovering/Resolving]
  - Sleep disorder [Recovered/Resolved]
  - Anaemia [Recovering/Resolving]
  - Haemorrhoidal haemorrhage [Recovering/Resolving]
  - Thrombocytopenia [Recovered/Resolved]
  - Fatigue [Unknown]

NARRATIVE: CASE EVENT DATE: 20141204
